FAERS Safety Report 18153632 (Version 3)
Quarter: 2020Q4

REPORT INFORMATION
  Report Type: Report from Study
  Country: US (occurrence: US)
  Receive Date: 20200816
  Receipt Date: 20201007
  Transmission Date: 20210113
  Serious: Yes (Death, Hospitalization, Other)
  Sender: FDA-Public Use
  Company Number: US-AMGEN-USASP2020131310

PATIENT
  Age: 83 Year
  Sex: Male

DRUGS (1)
  1. IMLYGIC [Suspect]
     Active Substance: TALIMOGENE LAHERPAREPVEC
     Indication: MALIGNANT MELANOMA
     Dosage: UNK
     Route: 026
     Dates: start: 20200723, end: 20200723

REACTIONS (3)
  - Herpes virus infection [Unknown]
  - Meningoencephalitis herpetic [Fatal]
  - Drug level increased [Unknown]

NARRATIVE: CASE EVENT DATE: 2020
